FAERS Safety Report 7970441-4 (Version None)
Quarter: 2011Q4

REPORT INFORMATION
  Report Type: 
  Country: None (occurrence: None)
  Receive Date: 20111212
  Receipt Date: 20111130
  Transmission Date: 20120403
  Serious: Yes (Hospitalization)
  Sender: FDA-Public Use
  Company Number: PHEH2011US01970

PATIENT
  Sex: Female
  Weight: 46.74 kg

DRUGS (5)
  1. EXJADE [Suspect]
     Indication: SICKLE CELL ANAEMIA
     Dosage: 1500 MG, DAILY
     Route: 048
     Dates: start: 20090923
  2. NORCO [Concomitant]
     Indication: PAIN
     Dosage: 1 DF, PRN
     Route: 048
     Dates: start: 20091217
  3. FOLIC ACID [Concomitant]
     Indication: ANAEMIA
     Dosage: 1 DF, DAILY
     Route: 048
  4. HYDREA [Concomitant]
     Indication: SICKLE CELL ANAEMIA
     Dosage: 1 DF, BID
     Route: 048
     Dates: start: 20111023
  5. MS CONTIN [Concomitant]
     Indication: PAIN
     Dosage: 1 DF, QD
     Route: 048
     Dates: start: 20111023

REACTIONS (3)
  - DEHYDRATION [None]
  - SICKLE CELL ANAEMIA WITH CRISIS [None]
  - PAIN [None]
